FAERS Safety Report 15148115 (Version 1)
Quarter: 2018Q3

REPORT INFORMATION
  Report Type: Spontaneous
  Country: US (occurrence: US)
  Receive Date: 20180716
  Receipt Date: 20180716
  Transmission Date: 20181010
  Serious: Yes (Other)
  Sender: FDA-Public Use
  Company Number: US-AMGEN-USASP2018093698

PATIENT
  Age: 86 Year
  Sex: Female

DRUGS (12)
  1. ASPIRIN. [Concomitant]
     Active Substance: ASPIRIN
     Dosage: 81 MG, QD
  2. ZANTAC [Concomitant]
     Active Substance: RANITIDINE HYDROCHLORIDE
     Indication: DYSPEPSIA
     Dosage: UNK UNK, AS NECESSARY
  3. TYLENOL [Concomitant]
     Active Substance: ACETAMINOPHEN
  4. PROLIA [Suspect]
     Active Substance: DENOSUMAB
     Indication: PROPHYLAXIS
     Dosage: UNK, Q6MO
     Route: 065
     Dates: start: 2018
  5. PROLIA [Suspect]
     Active Substance: DENOSUMAB
     Indication: OSTEOPOROSIS POSTMENOPAUSAL
     Dosage: UNK, Q6MO
     Route: 065
     Dates: start: 2013, end: 2015
  6. IBUPROFEN. [Concomitant]
     Active Substance: IBUPROFEN
     Dosage: 600 MG, AS NECESSARY
  7. ZANTAC [Concomitant]
     Active Substance: RANITIDINE HYDROCHLORIDE
     Indication: REFLUX GASTRITIS
  8. VITAMIN B12 [Concomitant]
     Active Substance: CYANOCOBALAMIN
     Dosage: 210 MG, UNK
  9. GLUCOSAMINE [Concomitant]
     Active Substance: GLUCOSAMINE
  10. CALCIUM + VIT D [Concomitant]
     Active Substance: CALCIUM\VITAMIN D
     Dosage: UNK (,000 UNITS OF VIT D AND CALCIUM 1,000)
  11. MAGNESIUM OXIDE HEAVY W/TOCOPHEROL [Concomitant]
  12. GABAPENTIN. [Concomitant]
     Active Substance: GABAPENTIN
     Indication: ARTHRITIS
     Dosage: UNK
     Dates: start: 20180618

REACTIONS (4)
  - Joint dislocation [Unknown]
  - Hypertension [Unknown]
  - Pain [Unknown]
  - Vertebroplasty [Unknown]

NARRATIVE: CASE EVENT DATE: 201408
